FAERS Safety Report 8790873 (Version 1)
Quarter: 2012Q4

REPORT INFORMATION
  Report Type: Spontaneous
  Country: US (occurrence: None)
  Receive Date: 20120913
  Receipt Date: 20120913
  Transmission Date: 20130627
  Serious: No
  Sender: FDA-Public Use
  Company Number: None

PATIENT
  Age: 46 Year
  Sex: Female
  Weight: 69.4 kg

DRUGS (1)
  1. SAVELLA [Suspect]
     Indication: FIBROMYALGIA
     Dosage: Additional Information about suspect product: 
Is this product the primary suspect or secondary suspect for the event? Primary
Cumulative Dose to First Reaction: 18000 mg
Time Interval Between First Dose and Reaction: 6 months
Time Interval Between Last Dose and Reaction: Not reported
     Dates: start: 20101005, end: 20120705

REACTIONS (5)
  - Rash [None]
  - Abdominal pain [None]
  - Constipation [None]
  - Ileus [None]
  - Food allergy [None]
